FAERS Safety Report 8583821-3 (Version None)
Quarter: 2012Q3

REPORT INFORMATION
  Report Type: 
  Country: None (occurrence: None)
  Receive Date: 20120810
  Receipt Date: 20120801
  Transmission Date: 20120928
  Serious: Yes (Disabling, Other)
  Sender: FDA-Public Use
  Company Number: GB-009507513-1208GBR001812

PATIENT

DRUGS (1)
  1. IMPLANON [Suspect]
     Indication: CONTRACEPTION
     Dosage: UNK
     Dates: start: 20110617

REACTIONS (8)
  - ACNE [None]
  - MENOMETRORRHAGIA [None]
  - WEIGHT INCREASED [None]
  - PARANOIA [None]
  - FATIGUE [None]
  - BREAST TENDERNESS [None]
  - MOOD SWINGS [None]
  - ABDOMINAL PAIN UPPER [None]
